FAERS Safety Report 7860165-6 (Version None)
Quarter: 2011Q4

REPORT INFORMATION
  Report Type: 
  Country: None (occurrence: None)
  Receive Date: 20111027
  Receipt Date: 20111024
  Transmission Date: 20120403
  Serious: Yes (Hospitalization)
  Sender: FDA-Public Use
  Company Number: US-BRACCO-007017

PATIENT
  Age: 74 Year
  Sex: Female

DRUGS (1)
  1. ISOVUE-370 [Suspect]
     Indication: ANGIOPLASTY

REACTIONS (2)
  - VISUAL PATHWAY DISORDER [None]
  - DISORIENTATION [None]
